FAERS Safety Report 9782655 (Version 3)
Quarter: 2014Q1

REPORT INFORMATION
  Report Type: Report from Study
  Country: JP (occurrence: JP)
  Receive Date: 20131226
  Receipt Date: 20140224
  Transmission Date: 20141002
  Serious: Yes (Death, Other)
  Sender: FDA-Public Use
  Company Number: JP-PFIZER INC-2013364195

PATIENT
  Age: 69 Year
  Sex: Female
  Weight: 37.5 kg

DRUGS (9)
  1. REVATIO [Suspect]
     Indication: PULMONARY ARTERIAL HYPERTENSION
     Dosage: 20 MG, 3X/DAY
     Route: 048
     Dates: start: 20090810
  2. REVATIO [Suspect]
     Indication: COLLAGEN-VASCULAR DISEASE
  3. CARELOAD [Concomitant]
     Indication: PULMONARY HYPERTENSION
     Dosage: UNK
     Route: 048
     Dates: start: 20101021
  4. LASIX [Concomitant]
     Indication: PROPHYLAXIS
     Dosage: UNK
     Route: 048
     Dates: start: 20101017
  5. ALDACTONE [Concomitant]
     Indication: PROPHYLAXIS
     Dosage: UNK
     Route: 048
     Dates: start: 20101021
  6. VOLIBRIS [Concomitant]
     Indication: PULMONARY HYPERTENSION
     Dosage: UNK
     Route: 048
     Dates: start: 20110303
  7. DEPAS [Concomitant]
     Dosage: UNK
     Route: 048
  8. WYPAX [Concomitant]
     Dosage: UNK
     Route: 048
  9. TOFRANIL [Concomitant]
     Dosage: UNK
     Route: 048

REACTIONS (2)
  - Death [Fatal]
  - Anaemia [Not Recovered/Not Resolved]
